FAERS Safety Report 6621935-5 (Version None)
Quarter: 2010Q1

REPORT INFORMATION
  Report Type: 
  Country: None (occurrence: None)
  Receive Date: 20100304
  Receipt Date: 20100222
  Transmission Date: 20100710
  Serious: Yes (Hospitalization)
  Sender: FDA-Public Use
  Company Number: B0636579A

PATIENT
  Age: 46 Year
  Sex: Male

DRUGS (4)
  1. CALCIUM CARBONATE [Suspect]
     Indication: DYSPEPSIA
     Dosage: 7.5 GRAM (S) / PER DAY / ORAL
     Route: 048
  2. CLONIDINE [Concomitant]
  3. LISINOPRIL [Concomitant]
  4. ASPIRIN [Concomitant]

REACTIONS (7)
  - BLOOD PRESSURE DIASTOLIC DECREASED [None]
  - DECREASED APPETITE [None]
  - HYPERCALCAEMIA [None]
  - INCORRECT DOSE ADMINISTERED [None]
  - MILK-ALKALI SYNDROME [None]
  - MUCOSAL DRYNESS [None]
  - RENAL FAILURE ACUTE [None]
